FAERS Safety Report 7591533-8 (Version None)
Quarter: 2011Q3

REPORT INFORMATION
  Report Type: 
  Country: None (occurrence: None)
  Receive Date: 20110701
  Receipt Date: 20110701
  Transmission Date: 20111222
  Serious: Yes (Hospitalization)
  Sender: FDA-Public Use
  Company Number: None

PATIENT
  Sex: Female
  Weight: 40.1 kg

DRUGS (6)
  1. VINCRISTINE SULFATE [Suspect]
     Dosage: 6 MG
     Dates: end: 20110418
  2. GRANISETRON [Concomitant]
  3. MERCAPTOPURINE [Suspect]
     Dosage: 900 MG
     Dates: end: 20110417
  4. METHOTREXATE [Suspect]
     Dosage: 13200 MG
     Dates: end: 20110404
  5. BACTRIM [Concomitant]
  6. SENOKOT [Concomitant]

REACTIONS (6)
  - INFUSION RELATED REACTION [None]
  - RASH PRURITIC [None]
  - DRY SKIN [None]
  - ERYTHEMA [None]
  - RASH MACULAR [None]
  - DERMATITIS CONTACT [None]
